FAERS Safety Report 9901374 (Version 2)
Quarter: 2014Q1

REPORT INFORMATION
  Report Type: Spontaneous
  Country: FR (occurrence: FR)
  Receive Date: 20140217
  Receipt Date: 20140226
  Transmission Date: 20141002
  Serious: Yes (Hospitalization, Other)
  Sender: FDA-Public Use
  Company Number: FR-PFIZER INC-2014039583

PATIENT
  Age: 77 Year
  Sex: Male

DRUGS (3)
  1. XALATAN [Suspect]
     Indication: GLAUCOMA
     Dosage: UNK
     Dates: end: 20140220
  2. AZOPT [Concomitant]
     Dosage: UNK
  3. CARTEOL [Concomitant]
     Dosage: UNK
     Dates: end: 20140220

REACTIONS (3)
  - Chest pain [Recovered/Resolved]
  - Asthma [Not Recovered/Not Resolved]
  - Nasal dryness [Not Recovered/Not Resolved]
